FAERS Safety Report 5835929-0 (Version None)
Quarter: 2008Q3

REPORT INFORMATION
  Report Type: 
  Country: None (occurrence: None)
  Receive Date: 20080806
  Receipt Date: 20080729
  Transmission Date: 20090109
  Serious: Yes (Other)
  Sender: FDA-Public Use
  Company Number: BR-PFIZER INC-2008063760

PATIENT
  Sex: Female

DRUGS (1)
  1. CELEBRA [Suspect]
     Indication: ARTHRALGIA
     Route: 048

REACTIONS (5)
  - DRUG INEFFECTIVE [None]
  - EAR DISORDER [None]
  - EAR PAIN [None]
  - HEADACHE [None]
  - VISUAL IMPAIRMENT [None]
